FAERS Safety Report 6061291-7 (Version None)
Quarter: 2009Q1

REPORT INFORMATION
  Report Type: 
  Country: None (occurrence: None)
  Receive Date: 20090202
  Receipt Date: 20090129
  Transmission Date: 20090719
  Serious: Yes (Other)
  Sender: FDA-Public Use
  Company Number: US-MERCK-0901USA04277

PATIENT
  Age: 66 Year
  Sex: Male

DRUGS (3)
  1. DECADRON [Suspect]
     Route: 048
  2. REVLIMID [Suspect]
     Indication: MULTIPLE MYELOMA
     Route: 048
     Dates: start: 20071226, end: 20080402
  3. REVLIMID [Suspect]
     Route: 048
     Dates: start: 20080403, end: 20080911

REACTIONS (3)
  - DIABETES MELLITUS [None]
  - FATIGUE [None]
  - RASH PRURITIC [None]
